FAERS Safety Report 5777756-9 (Version None)
Quarter: 2008Q2

REPORT INFORMATION
  Report Type: 
  Country: None (occurrence: None)
  Receive Date: 20080618
  Receipt Date: 20080606
  Transmission Date: 20081010
  Serious: Yes (Other)
  Sender: FDA-Public Use
  Company Number: BR-PFIZER INC-2008048933

PATIENT
  Sex: Male

DRUGS (1)
  1. MARAX (TABS) [Suspect]
     Indication: ASTHMA
     Route: 048

REACTIONS (1)
  - RESPIRATORY DISTRESS [None]
